FAERS Safety Report 10128613 (Version 1)
Quarter: 2014Q2

REPORT INFORMATION
  Report Type: Spontaneous
  Country: GB (occurrence: GB)
  Receive Date: 20140428
  Receipt Date: 20140428
  Transmission Date: 20141212
  Serious: Yes (Other)
  Sender: FDA-Public Use
  Company Number: GB-ACCORD-023309

PATIENT
  Age: 68 Year
  Sex: Female
  Weight: 138.9 kg

DRUGS (16)
  1. LETROZOLE [Suspect]
     Indication: BREAST CANCER
     Dates: start: 20131216
  2. PARACETAMOL [Concomitant]
     Dates: start: 20131216
  3. BUMETANIDE [Concomitant]
     Dates: start: 20131216
  4. ATORVASTATIN/ATORVASTATIN CALCIUM [Concomitant]
     Dates: start: 20131216
  5. VERAPAMIL/VERAPAMIL HYDROCHLORIDE [Concomitant]
     Dates: start: 20131216
  6. LEVOTHYROXINE [Concomitant]
     Dates: start: 20131216
  7. ISOSORBIDE [Concomitant]
     Dates: start: 20140113
  8. MEPTAZINOL/MEPTAZINOL HYDROCHLORIDE [Concomitant]
     Dates: start: 20131216
  9. NICORANDIL [Concomitant]
     Dates: start: 20131216
  10. WARFARIN [Concomitant]
     Dates: start: 20140121
  11. NAPROXEN [Concomitant]
     Dates: start: 20131216
  12. OMEPRAZOLE [Concomitant]
     Dates: start: 20131216
  13. RANITIDINE [Concomitant]
     Dates: start: 20140205, end: 20140307
  14. SERETIDE [Concomitant]
     Dates: start: 20131216
  15. LORATADINE [Concomitant]
     Dates: start: 20131216
  16. ACETYLSALICYLIC ACID [Concomitant]
     Dates: start: 20131216, end: 20140113

REACTIONS (2)
  - Anger [Recovering/Resolving]
  - Mood altered [Recovering/Resolving]
